FAERS Safety Report 25777564 (Version 1)
Quarter: 2025Q3

REPORT INFORMATION
  Report Type: Spontaneous
  Country: TW (occurrence: TW)
  Receive Date: 20250909
  Receipt Date: 20250909
  Transmission Date: 20251021
  Serious: Yes (Hospitalization)
  Sender: ABBVIE
  Company Number: TW-PFIZER INC-PV202500106730

PATIENT
  Age: 59 Year
  Sex: Male
  Weight: 68 kg

DRUGS (7)
  1. CEFTAROLINE FOSAMIL [Suspect]
     Active Substance: CEFTAROLINE FOSAMIL
     Indication: Pneumonia
     Dosage: UNK, 2X/DAY
     Route: 040
     Dates: start: 20250813, end: 202509
  2. MEROPENEM [Suspect]
     Active Substance: MEROPENEM
     Indication: Pneumonia
     Route: 065
     Dates: start: 20250813, end: 20250821
  3. Genta-C [Concomitant]
     Indication: Pneumonia
  4. SULFAMETHOXAZOLE [Suspect]
     Active Substance: SULFAMETHOXAZOLE
     Indication: Pneumonia
     Route: 065
     Dates: start: 20250822, end: 20250826
  5. Stazolin [Concomitant]
     Indication: Pneumonia
  6. VANCOMYCIN [Concomitant]
     Active Substance: VANCOMYCIN
     Indication: Pneumonia
  7. CEFEPIME [Concomitant]
     Active Substance: CEFEPIME HYDROCHLORIDE
     Indication: Pneumonia

REACTIONS (3)
  - Erythema [Unknown]
  - Stevens-Johnson syndrome [Unknown]
  - Swelling [Unknown]

NARRATIVE: CASE EVENT DATE: 20250829
